FAERS Safety Report 8064345-9 (Version None)
Quarter: 2012Q1

REPORT INFORMATION
  Report Type: 
  Country: None (occurrence: None)
  Receive Date: 20120123
  Receipt Date: 20120118
  Transmission Date: 20120608
  Serious: Yes (Life-Threatening, Hospitalization)
  Sender: FDA-Public Use
  Company Number: GB-PFIZER INC-2012015083

PATIENT
  Age: 64 Year
  Sex: Female

DRUGS (3)
  1. IBUPROFEN [Suspect]
     Dosage: UNK
     Route: 048
  2. METOCLOPRAMIDE HYDROCHLORIDE [Concomitant]
  3. AMITRIPTYLINE HYDROCHLORIDE [Concomitant]

REACTIONS (1)
  - RECTAL HAEMORRHAGE [None]
